FAERS Safety Report 6751388-8 (Version None)
Quarter: 2010Q2

REPORT INFORMATION
  Report Type: 
  Country: None (occurrence: None)
  Receive Date: 20100528
  Receipt Date: 20100519
  Transmission Date: 20101027
  Serious: Yes (Other)
  Sender: FDA-Public Use
  Company Number: 2010US001779

PATIENT

DRUGS (1)
  1. AMBISOME [Suspect]
     Indication: EVIDENCE BASED TREATMENT
     Dosage: 3 MG/KG, UID/QD

REACTIONS (4)
  - ANGIOEDEMA [None]
  - DYSPNOEA [None]
  - LARYNGOSPASM [None]
  - TACHYCARDIA [None]
